FAERS Safety Report 5300587-0 (Version None)
Quarter: 2007Q2

REPORT INFORMATION
  Report Type: 
  Country: None (occurrence: None)
  Receive Date: 20070418
  Receipt Date: 20070412
  Transmission Date: 20071010
  Serious: Yes (Hospitalization)
  Sender: FDA-Public Use
  Company Number: FR-GLAXOSMITHKLINE-B0466045A

PATIENT
  Age: 85 Year
  Sex: Female

DRUGS (5)
  1. LAMICTAL [Suspect]
     Route: 048
  2. NEURONTIN [Concomitant]
     Indication: EPILEPSY
     Dosage: 200MG THREE TIMES PER DAY
     Route: 048
  3. PARIET [Concomitant]
     Dosage: 20MG PER DAY
     Route: 048
  4. SERESTA [Concomitant]
     Dosage: 25MG PER DAY
     Route: 048
  5. FORLAX [Concomitant]
     Dosage: 20MG PER DAY
     Route: 048

REACTIONS (8)
  - BLOOD CREATINE PHOSPHOKINASE INCREASED [None]
  - BLOOD CREATININE INCREASED [None]
  - C-REACTIVE PROTEIN INCREASED [None]
  - DISORIENTATION [None]
  - FALL [None]
  - GENERAL PHYSICAL HEALTH DETERIORATION [None]
  - MOBILITY DECREASED [None]
  - MUSCULOSKELETAL PAIN [None]
